FAERS Safety Report 6520510-0 (Version None)
Quarter: 2009Q4

REPORT INFORMATION
  Report Type: 
  Country: None (occurrence: None)
  Receive Date: 20091229
  Receipt Date: 20091218
  Transmission Date: 20100525
  Serious: Yes (Death)
  Sender: FDA-Public Use
  Company Number: B0616131A

PATIENT
  Sex: Male

DRUGS (2)
  1. ALKERAN [Suspect]
     Dosage: 11MG PER DAY
     Dates: start: 20090507, end: 20090515
  2. UNKNOWN DRUG [Suspect]
     Dosage: 60MG PER DAY
     Dates: start: 20090507, end: 20090515

REACTIONS (2)
  - NEUTROPENIA [None]
  - SEPSIS [None]
